FAERS Safety Report 19904951 (Version 1)
Quarter: 2021Q3

REPORT INFORMATION
  Report Type: Report from Study
  Country: None (occurrence: PR)
  Receive Date: 20210930
  Receipt Date: 20210930
  Transmission Date: 20211014
  Serious: Yes (Hospitalization)
  Sender: FDA-Public Use
  Company Number: PR-ABBVIE-21K-131-4099326-00

PATIENT
  Age: 68 Year
  Sex: Male
  Weight: 71.73 kg

DRUGS (1)
  1. VENCLEXTA [Suspect]
     Active Substance: VENETOCLAX
     Indication: ACUTE MYELOID LEUKAEMIA
     Dosage: DAILY
     Route: 048
     Dates: start: 20210906

REACTIONS (1)
  - Haemoglobin decreased [Not Recovered/Not Resolved]

NARRATIVE: CASE EVENT DATE: 202109
